FAERS Safety Report 6697563-2 (Version None)
Quarter: 2010Q2

REPORT INFORMATION
  Report Type: 
  Country: None (occurrence: None)
  Receive Date: 20100426
  Receipt Date: 20100416
  Transmission Date: 20101027
  Serious: Yes (Hospitalization, Disabling, Other)
  Sender: FDA-Public Use
  Company Number: US-ABBOTT-10P-163-0639269-00

PATIENT
  Sex: Female
  Weight: 104.42 kg

DRUGS (6)
  1. HUMIRA [Suspect]
     Indication: CROHN'S DISEASE
     Dates: start: 20091201
  2. HUMIRA [Suspect]
  3. HUMIRA [Suspect]
  4. COUMADIN [Concomitant]
     Indication: DEEP VEIN THROMBOSIS
     Route: 048
     Dates: start: 20090801
  5. IV FLUIDS [Concomitant]
     Indication: DRUG USE FOR UNKNOWN INDICATION
     Route: 042
     Dates: start: 20100415
  6. IV MEDICATIONS [Concomitant]
     Indication: DRUG USE FOR UNKNOWN INDICATION
     Dates: start: 20100415

REACTIONS (4)
  - CROHN'S DISEASE [None]
  - INTERNATIONAL NORMALISED RATIO INCREASED [None]
  - NAUSEA [None]
  - PAIN IN EXTREMITY [None]
